FAERS Safety Report 17448052 (Version 1)
Quarter: 2020Q1

REPORT INFORMATION
  Report Type: Report from Study
  Country: ES (occurrence: ES)
  Receive Date: 20200222
  Receipt Date: 20200222
  Transmission Date: 20200409
  Serious: Yes (Hospitalization)
  Sender: FDA-Public Use
  Company Number: ES-ACCORD-173046

PATIENT
  Age: 40 Year
  Sex: Female

DRUGS (6)
  1. CLOZAPINE. [Concomitant]
     Active Substance: CLOZAPINE
     Route: 048
     Dates: start: 201510, end: 20190930
  2. PLENUR [Concomitant]
     Dosage: 100 TABLETS
     Route: 048
     Dates: start: 201301, end: 20190930
  3. PLENUR [LITHIUM] [Interacting]
     Active Substance: LITHIUM
     Dosage: 100 TABLETS
     Route: 048
     Dates: start: 20191001, end: 20191001
  4. CLONAZEPAM. [Suspect]
     Active Substance: CLONAZEPAM
     Dosage: 635A
     Route: 048
     Dates: start: 20191001, end: 20191001
  5. CLOZAPINE. [Interacting]
     Active Substance: CLOZAPINE
     Dosage: 682A
     Route: 048
     Dates: start: 20191001, end: 20191010
  6. CLOMIPRAMINE [Interacting]
     Active Substance: CLOMIPRAMINE
     Dosage: 633CH
     Route: 048
     Dates: start: 20191001, end: 20191001

REACTIONS (4)
  - Drug interaction [Unknown]
  - Suicide attempt [Unknown]
  - Depressed level of consciousness [Recovered/Resolved]
  - Antipsychotic drug level increased [Recovered/Resolved]

NARRATIVE: CASE EVENT DATE: 20191001
